FAERS Safety Report 11403191 (Version 1)
Quarter: 2015Q3

REPORT INFORMATION
  Report Type: Spontaneous
  Country: US (occurrence: US)
  Receive Date: 20150821
  Receipt Date: 20150821
  Transmission Date: 20151125
  Serious: Yes (Other)
  Sender: FDA-Public Use
  Company Number: US-AMGEN-USASP2015084724

PATIENT
  Age: 62 Year
  Sex: Female

DRUGS (1)
  1. NEULASTA [Suspect]
     Active Substance: PEGFILGRASTIM
     Indication: PRODUCT USED FOR UNKNOWN INDICATION
     Dosage: UNK
     Route: 065

REACTIONS (7)
  - Cardiac disorder [Unknown]
  - Scleroderma [Unknown]
  - Systemic lupus erythematosus [Unknown]
  - Pain in extremity [Unknown]
  - Bone pain [Unknown]
  - Cardiac failure congestive [Unknown]
  - Alopecia [Unknown]
